FAERS Safety Report 13210037 (Version 2)
Quarter: 2017Q1

REPORT INFORMATION
  Report Type: Spontaneous
  Country: US (occurrence: US)
  Receive Date: 20170210
  Receipt Date: 20170316
  Transmission Date: 20170428
  Serious: Yes (Death, Hospitalization)
  Sender: FDA-Public Use
  Company Number: US-JNJFOC-20170209141

PATIENT
  Sex: Male

DRUGS (22)
  1. MUCINEX DM [Concomitant]
     Active Substance: DEXTROMETHORPHAN HYDROBROMIDE\GUAIFENESIN
  2. DIPHENHYDRAMINE HYDROCHLORIDE W/PARACETAMOL [Concomitant]
     Active Substance: ACETAMINOPHEN\DIPHENHYDRAMINE HYDROCHLORIDE
  3. FLUTICASONE. [Concomitant]
     Active Substance: FLUTICASONE
  4. VIGAMOX [Concomitant]
     Active Substance: MOXIFLOXACIN HYDROCHLORIDE
  5. VITAMIN C [Concomitant]
     Active Substance: ASCORBIC ACID
  6. SENNA [Concomitant]
     Active Substance: SENNA LEAF\SENNOSIDES\SENNOSIDES A AND B
  7. ACETAMINOPHEN. [Concomitant]
     Active Substance: ACETAMINOPHEN
  8. CARVEDILOL. [Concomitant]
     Active Substance: CARVEDILOL
  9. CETIRIZINE [Concomitant]
     Active Substance: CETIRIZINE HYDROCHLORIDE
  10. LORAZEPAM. [Concomitant]
     Active Substance: LORAZEPAM
  11. ZOLPIDEM [Concomitant]
     Active Substance: ZOLPIDEM\ZOLPIDEM TARTRATE
  12. IMBRUVICA [Suspect]
     Active Substance: IBRUTINIB
     Indication: CHRONIC LYMPHOCYTIC LEUKAEMIA
     Route: 065
  13. COLACE [Concomitant]
     Active Substance: DOCUSATE SODIUM
  14. LOVASTATIN. [Concomitant]
     Active Substance: LOVASTATIN
  15. PREDNISONE. [Concomitant]
     Active Substance: PREDNISONE
  16. PROCHLORPERAZINE MALEATE. [Concomitant]
     Active Substance: PROCHLORPERAZINE MALEATE
  17. TRAMADOL. [Concomitant]
     Active Substance: TRAMADOL
  18. DUREZOL [Concomitant]
     Active Substance: DIFLUPREDNATE
  19. ONDANSETRON [Concomitant]
     Active Substance: ONDANSETRON
  20. MULTIVITAMINS [Concomitant]
     Active Substance: VITAMINS
  21. MIRALAX [Concomitant]
     Active Substance: POLYETHYLENE GLYCOL 3350
  22. HYPROMELLOSE [Concomitant]
     Active Substance: HYPROMELLOSES

REACTIONS (3)
  - Off label use [Recovered/Resolved]
  - Death [Fatal]
  - Product use issue [Recovered/Resolved]
